FAERS Safety Report 9536398 (Version 2)
Quarter: 2014Q1

REPORT INFORMATION
  Report Type: Report from Study
  Country: JP (occurrence: JP)
  Receive Date: 20130919
  Receipt Date: 20140225
  Transmission Date: 20141002
  Serious: Yes (Other)
  Sender: FDA-Public Use
  Company Number: JP-009507513-1309JPN006217

PATIENT
  Age: 70 Year
  Sex: Male

DRUGS (5)
  1. FOSAPREPITANT DIMEGLUMINE [Suspect]
     Indication: PROPHYLAXIS OF NAUSEA AND VOMITING
     Dosage: 150 MG, QD; (CONCENTRATION: 0.023%, FINAL AMOUNT: 650 ML) WAS GIVEN VIA A PERIPHERAL VEIN OVER 120 M
     Route: 041
     Dates: start: 20130110, end: 20130110
  2. BRIPLATIN [Suspect]
     Dosage: 100 MG, ONCE
     Route: 042
     Dates: start: 20130110, end: 20130110
  3. DEXART [Concomitant]
     Dosage: UNK
     Dates: start: 20130110, end: 20130114
  4. KYTRIL [Concomitant]
     Dosage: UNK
     Dates: start: 20130110, end: 20130110
  5. MANNITOL [Concomitant]
     Dosage: UNK
     Dates: start: 20130110, end: 20130110

REACTIONS (1)
  - Renal failure acute [Unknown]
